FAERS Safety Report 7425738-3 (Version None)
Quarter: 2011Q2

REPORT INFORMATION
  Report Type: 
  Country: None (occurrence: None)
  Receive Date: 20110420
  Receipt Date: 20110414
  Transmission Date: 20111010
  Serious: Yes (Life-Threatening, Hospitalization)
  Sender: FDA-Public Use
  Company Number: FR-BRISTOL-MYERS SQUIBB COMPANY-15677123

PATIENT
  Age: 85 Year
  Sex: Female

DRUGS (8)
  1. FOSAMAX [Concomitant]
  2. MICARDIS [Concomitant]
  3. FORLAX [Concomitant]
  4. NEO-MERCAZOLE TAB [Concomitant]
  5. ISOPTIN [Concomitant]
  6. OMEPRAZOLE [Concomitant]
  7. COUMADIN [Suspect]
     Indication: ATRIAL FIBRILLATION
     Route: 048
  8. ZOPICLONE [Concomitant]

REACTIONS (3)
  - FALL [None]
  - ANAEMIA [None]
  - MUSCLE HAEMORRHAGE [None]
